FAERS Safety Report 8872373 (Version 2)
Quarter: 2013Q1

REPORT INFORMATION
  Report Type: Spontaneous
  Country: US (occurrence: None)
  Receive Date: 20121025
  Receipt Date: 20121214
  Transmission Date: 20140127
  Serious: Yes (Other)
  Sender: FDA-Public Use
  Company Number: MC201200649

PATIENT
  Age: 62 Year
  Sex: Female

DRUGS (2)
  1. ANGIOMAX [Suspect]
     Indication: THROMBOSIS IN DEVICE
     Route: 042
     Dates: start: 201206
  2. WARFARIN [Concomitant]

REACTIONS (2)
  - Leukopenia [None]
  - Off label use [None]
